FAERS Safety Report 20973004 (Version 3)
Quarter: 2022Q4

REPORT INFORMATION
  Report Type: Spontaneous
  Country: US (occurrence: US)
  Receive Date: 20220617
  Receipt Date: 20221115
  Transmission Date: 20230113
  Serious: Yes (Hospitalization, Other)
  Sender: FDA-Public Use
  Company Number: US-Blueprint Medicines Corporation-SP-US-2022-001627

PATIENT
  Age: 73 Year
  Sex: Male
  Weight: 86.351 kg

DRUGS (7)
  1. AYVAKIT [Suspect]
     Active Substance: AVAPRITINIB
     Indication: Malignant connective tissue neoplasm
     Route: 048
     Dates: start: 20190930
  2. AYVAKIT [Suspect]
     Active Substance: AVAPRITINIB
     Route: 048
     Dates: start: 20190930
  3. AYVAKIT [Suspect]
     Active Substance: AVAPRITINIB
     Route: 048
     Dates: start: 20200107, end: 20200127
  4. AYVAKIT [Suspect]
     Active Substance: AVAPRITINIB
     Route: 065
     Dates: start: 20200205, end: 20200227
  5. AYVAKIT [Suspect]
     Active Substance: AVAPRITINIB
     Route: 065
     Dates: start: 20200309, end: 20200513
  6. AYVAKIT [Suspect]
     Active Substance: AVAPRITINIB
     Route: 065
     Dates: start: 20200618
  7. AYVAKIT [Suspect]
     Active Substance: AVAPRITINIB
     Route: 065
     Dates: start: 20200618

REACTIONS (10)
  - Blood glucose increased [Not Recovered/Not Resolved]
  - Clostridium difficile infection [Unknown]
  - Rash macular [Recovering/Resolving]
  - Limb discomfort [Not Recovered/Not Resolved]
  - Gait disturbance [Not Recovered/Not Resolved]
  - Fatigue [Not Recovered/Not Resolved]
  - Liver function test abnormal [Unknown]
  - Periorbital oedema [Unknown]
  - Blood creatinine increased [Unknown]
  - Off label use [Unknown]

NARRATIVE: CASE EVENT DATE: 20200513
